FAERS Safety Report 4596349-2 (Version None)
Quarter: 2005Q1

REPORT INFORMATION
  Report Type: 
  Country: None (occurrence: None)
  Receive Date: 20050228
  Receipt Date: 20050222
  Transmission Date: 20050727
  Serious: Yes (Life-Threatening, Other)
  Sender: FDA-Public Use
  Company Number: 200510017BCA

PATIENT
  Age: 72 Year
  Sex: Male

DRUGS (9)
  1. AVELOX [Suspect]
     Indication: CHRONIC OBSTRUCTIVE AIRWAYS DISEASE EXACERBATED
     Dosage: 400 MG, TOTAL DAILY, INTRAVENOUS
     Route: 042
     Dates: start: 20050105, end: 20050107
  2. AVELOX [Suspect]
     Indication: PNEUMONIA
     Dosage: 400 MG, TOTAL DAILY, INTRAVENOUS
     Route: 042
     Dates: start: 20050105, end: 20050107
  3. VECURONIUM [Concomitant]
  4. LASIX [Concomitant]
  5. VENTOLIN [Concomitant]
  6. ALTACE [Concomitant]
  7. PANTOPRAZOLE SODIUM [Concomitant]
  8. ATROVENT [Concomitant]
  9. CALCIUM GLUCONATE [Concomitant]

REACTIONS (2)
  - ELECTROCARDIOGRAM QT PROLONGED [None]
  - HYPOCALCAEMIA [None]
